FAERS Safety Report 6437707-0 (Version None)
Quarter: 2009Q4

REPORT INFORMATION
  Report Type: 
  Country: None (occurrence: None)
  Receive Date: 20091112
  Receipt Date: 20091103
  Transmission Date: 20100525
  Serious: Yes (Hospitalization, Other)
  Sender: FDA-Public Use
  Company Number: CA-PFIZER INC-2009253033

PATIENT
  Age: 70 Year
  Sex: Male
  Weight: 57 kg

DRUGS (3)
  1. PEMETREXED [Suspect]
     Indication: NON-SMALL CELL LUNG CANCER
     Dosage: 689 MG, EVERY 3 WEEKS
     Route: 042
     Dates: start: 20090521
  2. CISPLATIN [Suspect]
     Indication: NON-SMALL CELL LUNG CANCER
     Dosage: 86 MG, EVERY 3 WEEKS
     Route: 042
     Dates: start: 20090521
  3. SUNITINIB MALATE [Suspect]
     Indication: NON-SMALL CELL LUNG CANCER
     Dosage: 25 MG, 1X/DAY, SCHEDULE 2/1
     Route: 048
     Dates: start: 20090522, end: 20090805

REACTIONS (2)
  - DISEASE PROGRESSION [None]
  - NON-SMALL CELL LUNG CANCER [None]
